FAERS Safety Report 5522400-9 (Version None)
Quarter: 2007Q4

REPORT INFORMATION
  Report Type: 
  Country: None (occurrence: None)
  Receive Date: 20071120
  Receipt Date: 20071112
  Transmission Date: 20080405
  Serious: Yes (Other)
  Sender: FDA-Public Use
  Company Number: AT-PFIZER INC-2007095507

PATIENT
  Sex: Female
  Weight: 48.6 kg

DRUGS (4)
  1. DIFLUCAN [Suspect]
     Indication: PROPHYLAXIS
     Dosage: DAILY DOSE:200MG
     Route: 048
     Dates: start: 20060825, end: 20060830
  2. DIFLUCAN [Suspect]
     Indication: PROPHYLAXIS
     Dosage: DAILY DOSE:200MG
     Route: 042
     Dates: start: 20060831, end: 20060914
  3. CERTOMYCIN [Concomitant]
  4. TAZONAM [Concomitant]

REACTIONS (3)
  - BLOOD BILIRUBIN INCREASED [None]
  - JAUNDICE [None]
  - VOMITING [None]
